FAERS Safety Report 8296464-6 (Version None)
Quarter: 2012Q2

REPORT INFORMATION
  Report Type: 
  Country: None (occurrence: None)
  Receive Date: 20120418
  Receipt Date: 20120417
  Transmission Date: 20120825
  Serious: Yes (Death, Other)
  Sender: FDA-Public Use
  Company Number: ES-PFIZER INC-2012039310

PATIENT
  Age: 38 Year
  Sex: Male

DRUGS (8)
  1. TOPAMAX [Concomitant]
     Dosage: 100 UNK, UNK
     Route: 048
     Dates: start: 20120206, end: 20120210
  2. CLOPIXOL ACUPHASE [Concomitant]
     Dosage: UNK
     Route: 030
     Dates: start: 20120210, end: 20120210
  3. DIAZEPAM [Concomitant]
     Dosage: 10 UNK, UNK
     Route: 048
     Dates: start: 20120130, end: 20120210
  4. NEURONTIN [Concomitant]
     Dosage: 600 UNK, UNK
     Route: 048
     Dates: start: 20120206, end: 20120210
  5. NOCTAMID [Concomitant]
     Dosage: UNK
     Route: 048
     Dates: start: 20120202, end: 20120210
  6. ZIPRASIDONE HYDROCHLORIDE [Suspect]
     Indication: THERAPEUTIC PROCEDURE
     Dosage: UNK
     Route: 030
     Dates: start: 20120210
  7. OLANZAPINE [Concomitant]
     Dosage: UNK
  8. SOLIAN [Concomitant]
     Dosage: UNK
     Route: 048
     Dates: start: 20120130

REACTIONS (3)
  - BRAIN OEDEMA [None]
  - DEATH [None]
  - PERICARDIAL EFFUSION [None]
